FAERS Safety Report 9102450 (Version 1)
Quarter: 2013Q1

REPORT INFORMATION
  Report Type: Spontaneous
  Country: US (occurrence: US)
  Receive Date: 20130218
  Receipt Date: 20130218
  Transmission Date: 20140127
  Serious: Yes (Death)
  Sender: FDA-Public Use
  Company Number: US-COVIDIEN/TYCO HEALTHCARE/MALLINCKRODT-T201300495

PATIENT
  Age: 38 Year
  Sex: Female

DRUGS (7)
  1. HYDROCODONE/ACETAMINOPHEN [Suspect]
     Dosage: UNK
     Route: 048
  2. TRAMADOL [Suspect]
     Route: 048
  3. METAXALONE [Suspect]
     Route: 048
  4. BUPROPION [Suspect]
     Route: 048
  5. DIPHENHYDRAMINE [Suspect]
     Route: 048
  6. CITALOPRAM [Suspect]
     Route: 048
  7. AMITRIPTYLINE [Suspect]
     Route: 048

REACTIONS (2)
  - Drug abuse [Fatal]
  - Cardio-respiratory arrest [Fatal]
